FAERS Safety Report 23021934 (Version 1)
Quarter: 2023Q4

REPORT INFORMATION
  Report Type: Spontaneous
  Country: NL (occurrence: NL)
  Receive Date: 20231003
  Receipt Date: 20231003
  Transmission Date: 20240109
  Serious: Yes (Other)
  Sender: FDA-Public Use
  Company Number: NL-SUN PHARMACEUTICAL INDUSTRIES LTD-2023RR-410436

PATIENT
  Sex: Female
  Weight: 71 kg

DRUGS (2)
  1. ANASTROZOLE [Suspect]
     Active Substance: ANASTROZOLE
     Indication: Breast cancer stage III
     Dosage: UNK
     Route: 065
     Dates: start: 20180530, end: 20220330
  2. SERTRALINE [Concomitant]
     Active Substance: SERTRALINE HYDROCHLORIDE
     Indication: Product used for unknown indication
     Dosage: TABLET, 100 MG (MILLIGRAM)
     Route: 065

REACTIONS (4)
  - Arrhythmia [Recovering/Resolving]
  - Hypertension [Recovering/Resolving]
  - Depressed mood [Recovering/Resolving]
  - Weight increased [Recovering/Resolving]
